FAERS Safety Report 8522552-2 (Version None)
Quarter: 2012Q3

REPORT INFORMATION
  Report Type: 
  Country: None (occurrence: None)
  Receive Date: 20120719
  Receipt Date: 20120712
  Transmission Date: 20120928
  Serious: Yes (Other)
  Sender: FDA-Public Use
  Company Number: ES-ABBOTT-12P-144-0955454-00

PATIENT
  Sex: Male
  Weight: 82 kg

DRUGS (3)
  1. TOPICAL TREATMENT FOR PSORIASIS [Concomitant]
     Indication: PSORIASIS
  2. HUMIRA [Suspect]
     Indication: PSORIASIS
     Route: 058
     Dates: start: 20101126, end: 20101126
  3. HUMIRA [Suspect]
     Route: 058

REACTIONS (2)
  - LATENT TUBERCULOSIS [None]
  - TUBERCULIN TEST POSITIVE [None]
